FAERS Safety Report 10557436 (Version 1)
Quarter: 2014Q4

REPORT INFORMATION
  Report Type: Spontaneous
  Country: JP (occurrence: JP)
  Receive Date: 20141031
  Receipt Date: 20141031
  Transmission Date: 20150529
  Serious: Yes (Other)
  Sender: FDA-Public Use
  Company Number: JP-ASTRAZENECA-2014SE81005

PATIENT
  Age: 46 Year
  Sex: Female

DRUGS (1)
  1. ANAPEINE [Suspect]
     Active Substance: ROPIVACAINE HYDROCHLORIDE
     Indication: EPIDURAL ANAESTHESIA
     Dosage: 2 MG/ML, DOSE UNKNOWN
     Route: 008

REACTIONS (1)
  - Myelitis transverse [Recovering/Resolving]
